FAERS Safety Report 7646546-4 (Version None)
Quarter: 2011Q3

REPORT INFORMATION
  Report Type: 
  Country: None (occurrence: None)
  Receive Date: 20110801
  Receipt Date: 20110720
  Transmission Date: 20111222
  Serious: Yes (Other)
  Sender: FDA-Public Use
  Company Number: CH-US-EMD SERONO, INC.-7060540

PATIENT
  Sex: Female
  Weight: 84 kg

DRUGS (2)
  1. REBIF [Suspect]
     Indication: MULTIPLE SCLEROSIS
     Route: 058
     Dates: start: 20100621
  2. NON STEROIDAL ANTI INFLAMMATORY DRUG [Concomitant]
     Dates: end: 20110507

REACTIONS (5)
  - NASOPHARYNGITIS [None]
  - INFLUENZA LIKE ILLNESS [None]
  - FATIGUE [None]
  - DRUG HYPERSENSITIVITY [None]
  - PNEUMONIA [None]
